FAERS Safety Report 15943472 (Version 1)
Quarter: 2019Q1

REPORT INFORMATION
  Report Type: Spontaneous
  Country: US (occurrence: US)
  Receive Date: 20190118
  Receipt Date: 20190118
  Transmission Date: 20190417
  Serious: Yes (Other)
  Sender: FDA-Public Use
  Company Number: None

PATIENT
  Age: 53 Year
  Sex: Female
  Weight: 54.3 kg

DRUGS (2)
  1. RIBOCICLIB 400 MG QD DAYS1-21 [Suspect]
     Active Substance: RIBOCICLIB
     Indication: ENDOMETRIAL CANCER
     Route: 048
     Dates: start: 20180123, end: 20190114
  2. LETROZOLE 2.5 MG QOD AYS 1-28 [Suspect]
     Active Substance: LETROZOLE
     Indication: ENDOMETRIAL CANCER
     Route: 048
     Dates: start: 20180123, end: 20190114

REACTIONS (1)
  - Hyponatraemia [None]

NARRATIVE: CASE EVENT DATE: 20190117
